FAERS Safety Report 6035802-1 (Version None)
Quarter: 2009Q1

REPORT INFORMATION
  Report Type: 
  Country: None (occurrence: None)
  Receive Date: 20090113
  Receipt Date: 20090108
  Transmission Date: 20090719
  Serious: Yes (Death)
  Sender: FDA-Public Use
  Company Number: FR-PFIZER INC-2009153812

PATIENT

DRUGS (5)
  1. EXEMESTANE [Suspect]
     Indication: BREAST CANCER
     Dosage: 25 MG, 1X/DAY
     Route: 048
     Dates: start: 20030131
  2. PRAVASTATIN [Concomitant]
     Dosage: UNK
     Route: 048
     Dates: start: 19930101
  3. RHEOFLUX [Concomitant]
     Dosage: UNK
     Route: 048
     Dates: start: 19830101
  4. ACTONEL [Concomitant]
     Dosage: UNK
     Route: 048
     Dates: start: 20030701
  5. AGREAL [Concomitant]
     Dosage: UNK
     Route: 048
     Dates: start: 19880101

REACTIONS (1)
  - DEATH [None]
